FAERS Safety Report 7739345-6 (Version None)
Quarter: 2011Q3

REPORT INFORMATION
  Report Type: 
  Country: None (occurrence: None)
  Receive Date: 20110909
  Receipt Date: 20110830
  Transmission Date: 20111222
  Serious: Yes (Hospitalization)
  Sender: FDA-Public Use
  Company Number: BR-US-EMD SERONO, INC.-7080485

PATIENT
  Sex: Male

DRUGS (5)
  1. REBIF [Suspect]
     Indication: RELAPSING-REMITTING MULTIPLE SCLEROSIS
     Dates: start: 20050609
  2. LORAZEPAM [Concomitant]
  3. OMEPRAZOLE [Concomitant]
  4. VALPROIC ACID [Concomitant]
  5. SERTRALINE HYDROCHLORIDE [Concomitant]

REACTIONS (1)
  - BIPOLAR DISORDER [None]
